FAERS Safety Report 12890770 (Version 1)
Quarter: 2016Q4

REPORT INFORMATION
  Report Type: Spontaneous
  Country: US (occurrence: US)
  Receive Date: 20161025
  Receipt Date: 20161025
  Transmission Date: 20170207
  Serious: No
  Sender: FDA-Public Use
  Company Number: None

PATIENT
  Age: 87 Year
  Sex: Female
  Weight: 52.16 kg

DRUGS (10)
  1. TIKOSYN [Suspect]
     Active Substance: DOFETILIDE
     Indication: ATRIAL FIBRILLATION
     Route: 048
     Dates: start: 20150103, end: 20160307
  2. XANAX [Concomitant]
     Active Substance: ALPRAZOLAM
  3. PROTONIX [Concomitant]
     Active Substance: PANTOPRAZOLE SODIUM
  4. VITAMIN D3 [Concomitant]
     Active Substance: CHOLECALCIFEROL
  5. AREDS [Concomitant]
     Active Substance: MINERALS\VITAMINS
  6. TOPROL XL [Concomitant]
     Active Substance: METOPROLOL SUCCINATE
  7. ALDACTONE [Concomitant]
     Active Substance: SPIRONOLACTONE
  8. COUMADIN [Concomitant]
     Active Substance: WARFARIN SODIUM
  9. OMEGA 3 FISH OIL [Concomitant]
     Active Substance: FISH OIL\OMEGA-3 FATTY ACIDS
  10. MAGNESIUM [Concomitant]
     Active Substance: MAGNESIUM

REACTIONS (3)
  - Dyspnoea [None]
  - Dysphonia [None]
  - Cough [None]

NARRATIVE: CASE EVENT DATE: 20150701
